FAERS Safety Report 21469919 (Version 1)
Quarter: 2022Q4

REPORT INFORMATION
  Report Type: Spontaneous
  Country: JP (occurrence: JP)
  Receive Date: 20221018
  Receipt Date: 20221018
  Transmission Date: 20230112
  Serious: Yes (Hospitalization)
  Sender: FDA-Public Use
  Company Number: JP-SUN PHARMACEUTICAL INDUSTRIES LTD-2020R1-247479

PATIENT
  Age: 35 Year
  Sex: Male

DRUGS (1)
  1. NIACIN [Suspect]
     Active Substance: NIACIN
     Indication: Hypersensitivity
     Dosage: 500 MILLIGRAM
     Route: 048

REACTIONS (2)
  - Overdose [Unknown]
  - Flushing [Recovered/Resolved]
